FAERS Safety Report 4526240-9 (Version None)
Quarter: 2004Q4

REPORT INFORMATION
  Report Type: 
  Country: None (occurrence: None)
  Receive Date: 20041214
  Receipt Date: 20041201
  Transmission Date: 20050328
  Serious: Yes (Other)
  Sender: FDA-Public Use
  Company Number: JP-BRISTOL-MYERS SQUIBB COMPANY-12791034

PATIENT
  Age: 49 Year
  Sex: Male

DRUGS (5)
  1. CYCLOPHOSPHAMIDE [Suspect]
     Indication: LYMPHOMA
     Dates: start: 19971025, end: 19980513
  2. DOXORUBICIN HYDROCHLORIDE [Suspect]
     Indication: LYMPHOMA
     Dates: start: 19971025, end: 19980513
  3. VINCRISTINE SULFATE [Suspect]
     Indication: LYMPHOMA
     Dates: start: 19971025, end: 19980513
  4. CLADRIBINE [Suspect]
     Indication: LYMPHOMA
     Dosage: DAILY FOR 7 DAYS REPEATED EVERY 4 WKS
     Route: 042
     Dates: start: 19981202, end: 19990207
  5. PREDNISONE TAB [Suspect]
     Indication: LYMPHOMA
     Dates: start: 19971025, end: 19980513

REACTIONS (2)
  - MYELODYSPLASTIC SYNDROME [None]
  - TREATMENT RELATED SECONDARY MALIGNANCY [None]
